FAERS Safety Report 8989258 (Version 1)
Quarter: 2012Q4

REPORT INFORMATION
  Report Type: Report from Study
  Country: FR (occurrence: FR)
  Receive Date: 20121227
  Receipt Date: 20121227
  Transmission Date: 20130627
  Serious: Yes (Hospitalization)
  Sender: FDA-Public Use
  Company Number: FR-009507513-1212FRA008585

PATIENT
  Age: 41 Year
  Sex: Male
  Weight: 54 kg

DRUGS (8)
  1. ISENTRESS [Suspect]
     Indication: HIV INFECTION
     Dosage: 400 mg, bid
     Route: 048
     Dates: start: 20080219, end: 20080802
  2. STUDY DRUG (UNSPECIFIED) [Suspect]
     Indication: HIV INFECTION
     Dosage: UNK
     Route: 065
  3. TMC-114 [Suspect]
     Indication: HIV INFECTION
     Dosage: 1200 mg, bid
     Route: 048
     Dates: start: 20080219, end: 20080802
  4. TMC-125 [Suspect]
     Indication: HIV INFECTION
     Dosage: 400 mg, qd
     Route: 065
     Dates: start: 20080219, end: 20080802
  5. KIVEXA [Suspect]
     Dosage: 900 mg, qd
     Route: 065
     Dates: start: 20080219, end: 20080802
  6. SEROPLEX [Suspect]
     Dosage: 10 mg, qd
     Route: 048
     Dates: start: 200805, end: 20080802
  7. NORVIR [Concomitant]
     Indication: HIV INFECTION
     Dosage: 200 mg, bid
     Route: 048
     Dates: start: 20080531, end: 20080802
  8. XANAX [Concomitant]
     Dosage: UNK
     Route: 048
     Dates: start: 2008

REACTIONS (2)
  - Rash [Recovered/Resolved]
  - Oedema [Recovered/Resolved]
